FAERS Safety Report 17155674 (Version 1)
Quarter: 2019Q4

REPORT INFORMATION
  Report Type: Spontaneous
  Country: US (occurrence: US)
  Receive Date: 20191215
  Receipt Date: 20191215
  Transmission Date: 20200122
  Serious: No
  Sender: FDA-Public Use
  Company Number: US-ENDO PHARMACEUTICALS INC-2019-104773

PATIENT
  Age: 48 Year
  Sex: Male
  Weight: 77.1 kg

DRUGS (11)
  1. XIAFLEX [Suspect]
     Active Substance: COLLAGENASE CLOSTRIDIUM HISTOLYTICUM
     Dosage: 0.25 ML, ONCE EVERY 6WKS (CYCLE 1, INJECTION 2)
     Route: 026
     Dates: start: 20180627
  2. XIAFLEX [Suspect]
     Active Substance: COLLAGENASE CLOSTRIDIUM HISTOLYTICUM
     Dosage: 0.25 ML, ONCE EVERY 6WKS (CYCLE 3, INJECTION 1)
     Route: 026
     Dates: start: 20180910
  3. XIAFLEX [Suspect]
     Active Substance: COLLAGENASE CLOSTRIDIUM HISTOLYTICUM
     Dosage: 0.25 ML, ONCE EVERY 6WKS (CYCLE 2, INJECTION 2)
     Route: 026
     Dates: start: 20180807
  4. XIAFLEX [Suspect]
     Active Substance: COLLAGENASE CLOSTRIDIUM HISTOLYTICUM
     Dosage: 0.25 ML, ONCE EVERY 6WKS (CYCLE 5, INJECTION 1)
     Route: 026
     Dates: start: 20190415
  5. XIAFLEX [Suspect]
     Active Substance: COLLAGENASE CLOSTRIDIUM HISTOLYTICUM
     Dosage: 0.25 ML, ONCE EVERY 6WKS (CYCLE 1, INJECTION 1)
     Route: 026
     Dates: start: 20180625
  6. ALPROSTADIL. [Concomitant]
     Active Substance: ALPROSTADIL
     Indication: VASODILATION PROCEDURE
  7. XIAFLEX [Suspect]
     Active Substance: COLLAGENASE CLOSTRIDIUM HISTOLYTICUM
     Indication: PEYRONIE^S DISEASE
     Dosage: 0.25 ML, ONCE EVERY 6WKS (CYCLE 5, INJECTION 2)
     Route: 026
     Dates: start: 20190416
  8. XIAFLEX [Suspect]
     Active Substance: COLLAGENASE CLOSTRIDIUM HISTOLYTICUM
     Dosage: 0.25 ML, ONCE EVERY 6WKS (CYCLE 2, INJECTION 1)
     Route: 026
     Dates: start: 20180806
  9. XIAFLEX [Suspect]
     Active Substance: COLLAGENASE CLOSTRIDIUM HISTOLYTICUM
     Dosage: 0.25 ML, ONCE EVERY 6WKS (CYCLE 3, INJECTION 2)
     Route: 026
     Dates: start: 20180911
  10. XIAFLEX [Suspect]
     Active Substance: COLLAGENASE CLOSTRIDIUM HISTOLYTICUM
     Dosage: 0.25 ML, ONCE EVERY 6WKS (CYCLE 4, INJECTION 1)
     Route: 026
     Dates: start: 20181029
  11. XIAFLEX [Suspect]
     Active Substance: COLLAGENASE CLOSTRIDIUM HISTOLYTICUM
     Dosage: 0.25 ML, ONCE EVERY 6WKS (CYCLE 4, INJECTION 2)
     Route: 026
     Dates: start: 20181030

REACTIONS (5)
  - Penile swelling [Unknown]
  - Intentional product use issue [Not Recovered/Not Resolved]
  - Penile contusion [Recovering/Resolving]
  - Penile pain [Recovering/Resolving]
  - Drug ineffective [Not Recovered/Not Resolved]

NARRATIVE: CASE EVENT DATE: 20190415
